FAERS Safety Report 15267021 (Version 5)
Quarter: 2019Q1

REPORT INFORMATION
  Report Type: Spontaneous
  Country: US (occurrence: US)
  Receive Date: 20180810
  Receipt Date: 20190221
  Transmission Date: 20190417
  Serious: Yes (Hospitalization, Other)
  Sender: FDA-Public Use
  Company Number: US-ACTELION-A-US2018-177121

PATIENT
  Age: 70 Year
  Sex: Female
  Weight: 56.69 kg

DRUGS (3)
  1. FLOLAN [Concomitant]
     Active Substance: EPOPROSTENOL SODIUM
     Dosage: UNK
     Dates: end: 20190131
  2. REVATIO [Concomitant]
     Active Substance: SILDENAFIL CITRATE
  3. OPSUMIT [Suspect]
     Active Substance: MACITENTAN
     Indication: PULMONARY ARTERIAL HYPERTENSION
     Dosage: 10 MG, QD
     Route: 048
     Dates: start: 20160914

REACTIONS (5)
  - Internal haemorrhage [Unknown]
  - Nausea [Unknown]
  - Pancreatic carcinoma [Unknown]
  - Diabetes mellitus [Unknown]
  - Liver disorder [Unknown]
